FAERS Safety Report 4423362-8 (Version None)
Quarter: 2004Q3

REPORT INFORMATION
  Report Type: 
  Country: None (occurrence: None)
  Receive Date: 20040809
  Receipt Date: 20040730
  Transmission Date: 20050211
  Serious: Yes (Other)
  Sender: FDA-Public Use
  Company Number: A-CH2004-06615

PATIENT
  Age: 71 Year
  Sex: Female
  Weight: 22.6799 kg

DRUGS (9)
  1. TRACLEER [Suspect]
     Indication: PULMONARY HYPERTENSION
     Dosage: 62.5 MG , BID, ORAL
     Route: 048
     Dates: start: 20040517, end: 20040614
  2. RIFAMPICIN [Concomitant]
  3. PYOSTACINE (PRISTINAMYCIN) [Concomitant]
  4. VANCOMYCIN [Concomitant]
  5. ACETAMINOPHEN [Concomitant]
  6. OMEPRAZOLE [Concomitant]
  7. CALCIDOSE (CALCIUM CARBONATE) [Concomitant]
  8. PREDNISONE TAB [Concomitant]
  9. PRAXILENE (NAFTIDROFURLY OXALATE) [Concomitant]

REACTIONS (2)
  - ALANINE AMINOTRANSFERASE INCREASED [None]
  - ASPARTATE AMINOTRANSFERASE INCREASED [None]
